FAERS Safety Report 5400273-2 (Version None)
Quarter: 2007Q3

REPORT INFORMATION
  Report Type: 
  Country: None (occurrence: None)
  Receive Date: 20070730
  Receipt Date: 20070720
  Transmission Date: 20080115
  Serious: Yes (Hospitalization)
  Sender: FDA-Public Use
  Company Number: US-ROCHE-507990

PATIENT
  Age: 69 Year
  Sex: Male

DRUGS (4)
  1. XELODA [Suspect]
     Dosage: THE THERAPY WAS FOR 2 WEEKS.
     Route: 048
     Dates: start: 20070523, end: 20070607
  2. NORVASC [Concomitant]
  3. LOPRESSOR [Concomitant]
  4. UNSPECIFIED DRUGS [Concomitant]
     Indication: ANTICOAGULANT THERAPY
     Dosage: REPORTED AS ^BLOOD THINNERS^

REACTIONS (8)
  - COLITIS [None]
  - DEEP VEIN THROMBOSIS [None]
  - DIARRHOEA [None]
  - FUNGAEMIA [None]
  - HYPOVOLAEMIC SHOCK [None]
  - INTESTINAL ISCHAEMIA [None]
  - METABOLIC ACIDOSIS [None]
  - SEPSIS [None]
